FAERS Safety Report 19050352 (Version 2)
Quarter: 2021Q2

REPORT INFORMATION
  Report Type: Report from Study
  Country: None (occurrence: US)
  Receive Date: 20210324
  Receipt Date: 20210403
  Transmission Date: 20210717
  Serious: Yes (Hospitalization)
  Sender: FDA-Public Use
  Company Number: US-ABBVIE-21K-163-3800692-00

PATIENT
  Age: 72 Year
  Sex: Male
  Weight: 83.08 kg

DRUGS (5)
  1. COVID?19 VACCINE NOS. [Concomitant]
     Active Substance: COVID-19 VACCINE NOS
     Indication: COVID-19 IMMUNISATION
     Dosage: MODERNA
     Route: 030
     Dates: start: 20210303, end: 20210303
  2. HUMIRA [Suspect]
     Active Substance: ADALIMUMAB
     Indication: COLITIS ULCERATIVE
     Route: 058
     Dates: start: 20201102
  3. PREDNISONE. [Suspect]
     Active Substance: PREDNISONE
     Indication: CLOSTRIDIUM DIFFICILE INFECTION
     Route: 065
  4. CIPROFLOXACIN. [Concomitant]
     Active Substance: CIPROFLOXACIN
     Indication: CLOSTRIDIUM DIFFICILE INFECTION
  5. PREDNISONE. [Suspect]
     Active Substance: PREDNISONE
     Indication: GASTROINTESTINAL DISORDER

REACTIONS (14)
  - Feeling jittery [Not Recovered/Not Resolved]
  - Joint swelling [Recovering/Resolving]
  - Joint swelling [Recovered/Resolved]
  - Sleep disorder [Recovered/Resolved]
  - General physical health deterioration [Recovered/Resolved]
  - Blood pressure decreased [Recovered/Resolved]
  - Muscle spasms [Recovered/Resolved]
  - Clostridium difficile infection [Recovered/Resolved]
  - Frequent bowel movements [Recovered/Resolved]
  - Clostridium difficile infection [Recovered/Resolved]
  - Sleep disorder [Unknown]
  - Peripheral swelling [Recovering/Resolving]
  - Peripheral swelling [Recovered/Resolved]
  - Vein collapse [Recovered/Resolved]

NARRATIVE: CASE EVENT DATE: 20201207
